FAERS Safety Report 9874356 (Version 2)
Quarter: 2014Q1

REPORT INFORMATION
  Report Type: Spontaneous
  Country: US (occurrence: US)
  Receive Date: 20140206
  Receipt Date: 20140206
  Transmission Date: 20141002
  Serious: No
  Sender: FDA-Public Use
  Company Number: US-ACORDA-ACO_31797_2012

PATIENT
  Age: 31 Year
  Sex: Female
  Weight: 45.35 kg

DRUGS (4)
  1. AMPYRA [Suspect]
     Indication: MUSCULAR WEAKNESS
     Dosage: 10 MG, Q 12 HRS
     Route: 048
     Dates: start: 20120629, end: 20120726
  2. COPAXONE [Suspect]
     Indication: MULTIPLE SCLEROSIS
     Dosage: QD
     Route: 058
     Dates: start: 20100920, end: 20120803
  3. VITAMIN D [Concomitant]
     Indication: PRODUCT USED FOR UNKNOWN INDICATION
  4. FOLIC ACID [Concomitant]
     Indication: PRODUCT USED FOR UNKNOWN INDICATION

REACTIONS (10)
  - Idiopathic urticaria [Recovered/Resolved]
  - Mechanical urticaria [Recovered/Resolved]
  - Dermatitis [Recovered/Resolved]
  - Skin lesion [Recovered/Resolved]
  - Angioedema [Recovered/Resolved]
  - Eye swelling [Recovered/Resolved]
  - Exposure during pregnancy [Unknown]
  - Cervical incompetence [None]
  - Vaginal haemorrhage [Unknown]
  - Glucose tolerance impaired in pregnancy [Unknown]
